FAERS Safety Report 9253991 (Version 3)
Quarter: 2013Q4

REPORT INFORMATION
  Report Type: Spontaneous
  Country: US (occurrence: US)
  Receive Date: 20130425
  Receipt Date: 20131018
  Transmission Date: 20140711
  Serious: Yes (Hospitalization, Disabling, Other)
  Sender: FDA-Public Use
  Company Number: US-ASTRAZENECA-2013SE27400

PATIENT
  Age: 52 Year
  Sex: Female
  Weight: 129.3 kg

DRUGS (18)
  1. NEXIUM [Suspect]
     Indication: GASTROOESOPHAGEAL REFLUX DISEASE
     Route: 048
     Dates: start: 20040816, end: 2005
  2. NEXIUM [Suspect]
     Indication: GASTROOESOPHAGEAL REFLUX DISEASE
     Route: 048
     Dates: start: 20040816, end: 20050415
  3. PREMARIN [Concomitant]
     Indication: HORMONE REPLACEMENT THERAPY
  4. PLAVIX [Concomitant]
     Dates: start: 20040822
  5. ZOCOR [Concomitant]
     Dates: start: 20040822
  6. METOPROLOL [Concomitant]
     Dates: start: 20040819
  7. XANAX [Concomitant]
     Dates: start: 20040816
  8. FOSAMAX [Concomitant]
     Dates: start: 20040816
  9. POTASSIUM CHLORIDE [Concomitant]
     Dates: start: 20040816
  10. LASIX [Concomitant]
     Dosage: PRN
  11. SINGULAIR [Concomitant]
     Dosage: EVERY DAY
  12. ZOLOFT [Concomitant]
     Dates: start: 20040816
  13. CALCIUM [Concomitant]
     Dates: start: 20050627
  14. ASPIRIN [Concomitant]
     Dates: start: 20050627
  15. ALTACE [Concomitant]
     Dates: start: 20050627
  16. TYLENOL [Concomitant]
     Dates: start: 20050627
  17. CLONAZEPAM [Concomitant]
     Dates: start: 20050627
  18. METHYLPREDNISONE [Concomitant]
     Dates: start: 20050627

REACTIONS (19)
  - Cerebrovascular accident [Unknown]
  - Neoplasm malignant [Unknown]
  - Convulsion [Unknown]
  - Renal disorder [Unknown]
  - Rib fracture [Unknown]
  - Nephrolithiasis [Unknown]
  - Cardiac disorder [Unknown]
  - Limb crushing injury [Unknown]
  - Osteoporosis [Unknown]
  - Bone disorder [Unknown]
  - Multiple fractures [Unknown]
  - Muscle disorder [Unknown]
  - Dystonia [Unknown]
  - Arthritis [Unknown]
  - Diabetes mellitus [Unknown]
  - Vitamin D deficiency [Unknown]
  - Stress [Unknown]
  - Depression [Unknown]
  - Major depression [Unknown]
